FAERS Safety Report 17743950 (Version 1)
Quarter: 2020Q2

REPORT INFORMATION
  Report Type: Spontaneous
  Country: BR (occurrence: BR)
  Receive Date: 20200505
  Receipt Date: 20200505
  Transmission Date: 20200714
  Serious: Yes (Other)
  Sender: FDA-Public Use
  Company Number: BR-ASTRAZENECA-2020SE57866

PATIENT
  Sex: Male

DRUGS (2)
  1. ESOMEPRAZOLE. [Suspect]
     Active Substance: ESOMEPRAZOLE MAGNESIUM
     Indication: OESOPHAGITIS
     Dosage: 1 TABLET
     Route: 048
     Dates: start: 20190401
  2. RANITIDINE. [Concomitant]
     Active Substance: RANITIDINE
     Dosage: UNKNOWN
     Route: 065

REACTIONS (5)
  - Dyspnoea [Unknown]
  - Dyspepsia [Not Recovered/Not Resolved]
  - Drug ineffective [Not Recovered/Not Resolved]
  - Suspected COVID-19 [Unknown]
  - Intentional product misuse [Unknown]
